FAERS Safety Report 25426771 (Version 1)
Quarter: 2025Q2

REPORT INFORMATION
  Report Type: Spontaneous
  Country: US (occurrence: US)
  Receive Date: 20250612
  Receipt Date: 20250612
  Transmission Date: 20250717
  Serious: Yes (Other)
  Sender: EMD SERONO INC
  Company Number: US-Merck Healthcare KGaA-2025029040

PATIENT
  Age: 56 Year
  Sex: Male

DRUGS (2)
  1. MAVENCLAD [Suspect]
     Active Substance: CLADRIBINE
     Indication: Multiple sclerosis
     Dates: start: 20241211, end: 20241215
  2. MAVENCLAD [Suspect]
     Active Substance: CLADRIBINE
     Dates: start: 20250109, end: 20250113

REACTIONS (8)
  - Optic neuritis [Unknown]
  - Bladder dysfunction [Unknown]
  - Fatigue [Unknown]
  - Gait disturbance [Unknown]
  - Muscle spasticity [Unknown]
  - Coordination abnormal [Unknown]
  - Visual impairment [Unknown]
  - Ill-defined disorder [Unknown]
